FAERS Safety Report 7583321-3 (Version None)
Quarter: 2011Q2

REPORT INFORMATION
  Report Type: 
  Country: None (occurrence: None)
  Receive Date: 20110630
  Receipt Date: 20110621
  Transmission Date: 20111010
  Serious: Yes (Hospitalization)
  Sender: FDA-Public Use
  Company Number: IR-ASTRAZENECA-2011SE37618

PATIENT
  Age: 70 Year
  Sex: Female

DRUGS (2)
  1. ATENOLOL [Suspect]
  2. DRUG UNSPECIFIED [Interacting]

REACTIONS (4)
  - DIZZINESS [None]
  - DYSPNOEA [None]
  - HEADACHE [None]
  - DRUG INTERACTION [None]
